FAERS Safety Report 12692741 (Version 2)
Quarter: 2019Q1

REPORT INFORMATION
  Report Type: Spontaneous
  Country: GB (occurrence: GB)
  Receive Date: 20160829
  Receipt Date: 20190326
  Transmission Date: 20190417
  Serious: Yes (Life-Threatening, Hospitalization, Other)
  Sender: FDA-Public Use
  Company Number: GB-ACCORD-043411

PATIENT
  Age: 44 Year
  Sex: Male

DRUGS (7)
  1. ZOMORPH [Concomitant]
     Active Substance: MORPHINE SULFATE
     Dosage: 20 MG BD
  2. CLOMETHIAZOLE/CLOMETHIAZOLE EDISILATE [Concomitant]
     Dosage: CLOMETHIOZOLE 384 MG OD
  3. VENLAFAXINE [Interacting]
     Active Substance: VENLAFAXINE HYDROCHLORIDE
     Indication: PRODUCT USED FOR UNKNOWN INDICATION
     Dosage: 300 MG OD
  4. QUETIAPINE. [Suspect]
     Active Substance: QUETIAPINE
     Indication: PRODUCT USED FOR UNKNOWN INDICATION
     Dosage: ALSO TAKEN 250 MG,200 MG
  5. PREGABALIN. [Concomitant]
     Active Substance: PREGABALIN
     Dosage: 300 MG BD
  6. DIAZEPAM. [Concomitant]
     Active Substance: DIAZEPAM
  7. PROCYCLIDINE/PROCYCLIDINE HYDROCHLORIDE [Concomitant]
     Indication: MYOCLONUS
     Dosage: 2.5 MG TDS

REACTIONS (2)
  - Drug interaction [Unknown]
  - Serotonin syndrome [Recovered/Resolved]
